FAERS Safety Report 17004387 (Version 1)
Quarter: 2019Q4

REPORT INFORMATION
  Report Type: Spontaneous
  Country: SK (occurrence: SK)
  Receive Date: 20191107
  Receipt Date: 20191107
  Transmission Date: 20200122
  Serious: Yes (Hospitalization, Other)
  Sender: FDA-Public Use
  Company Number: SK-GLAXOSMITHKLINE-SK2019EME189292

PATIENT

DRUGS (2)
  1. ACITRETIN. [Suspect]
     Active Substance: ACITRETIN
     Indication: PSORIASIS
     Dosage: 25 MG, QD
     Route: 048
     Dates: start: 201901
  2. PENICILLIN [Concomitant]
     Active Substance: PENICILLIN
     Indication: PSORIASIS
     Dosage: 1.5 MILLION IU, QD
     Route: 030

REACTIONS (3)
  - Renal function test abnormal [Unknown]
  - Anaemia [Unknown]
  - Hypercholesterolaemia [Unknown]

NARRATIVE: CASE EVENT DATE: 2019
